FAERS Safety Report 7256331-3 (Version None)
Quarter: 2011Q1

REPORT INFORMATION
  Report Type: 
  Country: None (occurrence: None)
  Receive Date: 20110129
  Receipt Date: 20100623
  Transmission Date: 20110831
  Serious: No
  Sender: FDA-Public Use
  Company Number: US-ABBOTT-10P-163-0640422-00

PATIENT
  Sex: Female
  Weight: 59.928 kg

DRUGS (11)
  1. SOMA [Concomitant]
     Indication: BACK PAIN
  2. VALIUM [Concomitant]
     Indication: BIPOLAR DISORDER
  3. PLAQUENIL [Concomitant]
     Indication: RHEUMATOID ARTHRITIS
  4. PREDNISONE [Concomitant]
     Indication: RHEUMATOID ARTHRITIS
  5. HUMIRA [Suspect]
     Indication: RHEUMATOID ARTHRITIS
     Route: 058
     Dates: start: 20091001, end: 20100215
  6. TOPAMAX [Concomitant]
     Indication: BIPOLAR DISORDER
  7. EXFORGE [Concomitant]
     Indication: HYPERTENSION
  8. DARVOCET-N 100 [Concomitant]
     Indication: PAIN
  9. LEFLUNOMIDE [Concomitant]
     Indication: RHEUMATOID ARTHRITIS
  10. TRILEPTAL [Concomitant]
     Indication: BIPOLAR DISORDER
  11. HUMIRA [Suspect]
     Dates: start: 20100501

REACTIONS (5)
  - NAUSEA [None]
  - SWELLING [None]
  - ARTHRALGIA [None]
  - PAIN IN EXTREMITY [None]
  - RESPIRATORY DISORDER [None]
